FAERS Safety Report 6911470-9 (Version None)
Quarter: 2010Q3

REPORT INFORMATION
  Report Type: 
  Country: None (occurrence: None)
  Receive Date: 20100806
  Receipt Date: 20100726
  Transmission Date: 20110219
  Serious: Yes (Other)
  Sender: FDA-Public Use
  Company Number: GR-PFIZER INC-2010093709

PATIENT
  Age: 56 Year
  Sex: Female

DRUGS (2)
  1. DALACIN [Suspect]
     Indication: SKIN LESION
     Dosage: 600 MG, 2X/DAY
     Route: 030
  2. ZINACEF [Suspect]
     Indication: SKIN LESION
     Dosage: 750 MG, 3X/DAY
     Route: 030

REACTIONS (1)
  - ACUTE GENERALISED EXANTHEMATOUS PUSTULOSIS [None]
